FAERS Safety Report 8076464-1 (Version None)
Quarter: 2012Q1

REPORT INFORMATION
  Report Type: 
  Country: None (occurrence: None)
  Receive Date: 20120127
  Receipt Date: 20120120
  Transmission Date: 20120608
  Serious: Yes (Death, Life-Threatening, Hospitalization, Disabling)
  Sender: FDA-Public Use
  Company Number: DE-ROCHE-781416

PATIENT
  Sex: Female
  Weight: 60 kg

DRUGS (10)
  1. KEPPRA [Concomitant]
  2. SIMVASTATIN [Concomitant]
  3. MABTHERA [Suspect]
     Indication: NON-HODGKIN'S LYMPHOMA
     Dosage: 4 ADMINISTRATIONS RECEIVED IN TOTAL
     Route: 042
     Dates: start: 20011001, end: 20011101
  4. LAMOTRIGINE [Concomitant]
  5. MABTHERA [Suspect]
     Route: 042
     Dates: start: 20080101, end: 20101201
  6. FLUDARABINE [Concomitant]
  7. MABTHERA [Suspect]
     Dosage: 14 ADMINISTRATIONS RECEIVED IN TOTAL
     Route: 042
  8. PLAVIX [Concomitant]
  9. MABTHERA [Suspect]
     Dosage: 12 ADMINISTRATIONS RECEIVED IN TOTAL
     Route: 042
     Dates: start: 20050101, end: 20070101
  10. CHEMOTHERAPY NOS [Concomitant]
     Indication: B-CELL LYMPHOMA

REACTIONS (3)
  - PROGRESSIVE MULTIFOCAL LEUKOENCEPHALOPATHY [None]
  - INFARCTION [None]
  - CEREBROVASCULAR ACCIDENT [None]
